FAERS Safety Report 14408911 (Version 1)
Quarter: 2018Q1

REPORT INFORMATION
  Report Type: Spontaneous
  Country: TR (occurrence: TR)
  Receive Date: 20180119
  Receipt Date: 20180119
  Transmission Date: 20180509
  Serious: Yes (Life-Threatening, Disabling)
  Sender: FDA-Public Use
  Company Number: TR-009507513-1801TUR005537

PATIENT
  Age: 32 Year
  Sex: Female
  Weight: 50 kg

DRUGS (2)
  1. AERIUS [Suspect]
     Active Substance: DESLORATADINE
     Indication: OROPHARYNGEAL PAIN
     Dosage: 5 MG, 1 TIME BEFORE SLEEP
     Route: 048
     Dates: start: 20171228, end: 20180101
  2. AERIUS [Suspect]
     Active Substance: DESLORATADINE
     Indication: THROAT IRRITATION

REACTIONS (1)
  - Vocal cord disorder [Not Recovered/Not Resolved]

NARRATIVE: CASE EVENT DATE: 20171228
